FAERS Safety Report 20015808 (Version 1)
Quarter: 2021Q4

REPORT INFORMATION
  Report Type: Spontaneous
  Country: US (occurrence: None)
  Receive Date: 20211102
  Receipt Date: 20211102
  Transmission Date: 20220303
  Serious: Yes (Other)
  Sender: FDA-Public Use
  Company Number: None

PATIENT
  Age: 29 Year
  Sex: Male
  Weight: 97.65 kg

DRUGS (1)
  1. REGEN-COV [Suspect]
     Active Substance: CASIRIVIMAB\IMDEVIMAB
     Indication: COVID-19
     Route: 041
     Dates: start: 20211101, end: 20211101

REACTIONS (4)
  - Infusion related reaction [None]
  - Hyperhidrosis [None]
  - Feeling hot [None]
  - Sensation of foreign body [None]

NARRATIVE: CASE EVENT DATE: 20211101
